FAERS Safety Report 23146614 (Version 1)
Quarter: 2023Q4

REPORT INFORMATION
  Report Type: Spontaneous
  Country: CN (occurrence: CN)
  Receive Date: 20231105
  Receipt Date: 20231105
  Transmission Date: 20240109
  Serious: Yes (Hospitalization, Other)
  Sender: FDA-Public Use
  Company Number: CN-EPICPHARMA-CN-2023EPCLIT01648

PATIENT
  Age: 63 Year
  Sex: Female

DRUGS (9)
  1. CARBOPLATIN [Suspect]
     Active Substance: CARBOPLATIN
     Indication: Lung squamous cell carcinoma stage III
     Dosage: CYCLE 1
     Route: 065
     Dates: start: 20211224
  2. CARBOPLATIN [Suspect]
     Active Substance: CARBOPLATIN
     Dosage: CYCLE 2
     Route: 065
     Dates: start: 20220117
  3. CARBOPLATIN [Suspect]
     Active Substance: CARBOPLATIN
     Dosage: CYCLE 3
     Route: 065
     Dates: start: 20220208
  4. PACLITAXEL [Suspect]
     Active Substance: PACLITAXEL
     Indication: Lung squamous cell carcinoma stage III
     Dosage: CYCLE 1
     Route: 065
     Dates: start: 20211224
  5. PACLITAXEL [Suspect]
     Active Substance: PACLITAXEL
     Dosage: CYCLE 2
     Route: 065
     Dates: start: 20220117
  6. PACLITAXEL [Suspect]
     Active Substance: PACLITAXEL
     Dosage: CYCLE 3
     Route: 065
     Dates: start: 20220208
  7. PEMBROLIZUMAB [Suspect]
     Active Substance: PEMBROLIZUMAB
     Indication: Lung squamous cell carcinoma stage III
     Dosage: CYCLE 1
     Route: 065
     Dates: start: 20211224
  8. PEMBROLIZUMAB [Suspect]
     Active Substance: PEMBROLIZUMAB
     Dosage: CYCLE 2
     Route: 065
     Dates: start: 20220217
  9. PEMBROLIZUMAB [Suspect]
     Active Substance: PEMBROLIZUMAB
     Dosage: CYCLE 3
     Route: 065
     Dates: start: 20220208

REACTIONS (3)
  - Interstitial lung disease [Recovered/Resolved]
  - Enterocolitis [Unknown]
  - Product use in unapproved indication [Unknown]

NARRATIVE: CASE EVENT DATE: 20220130
